FAERS Safety Report 7242000-2 (Version None)
Quarter: 2011Q1

REPORT INFORMATION
  Report Type: 
  Country: None (occurrence: None)
  Receive Date: 20110124
  Receipt Date: 20100713
  Transmission Date: 20110831
  Serious: Yes (Death, Hospitalization, Other)
  Sender: FDA-Public Use
  Company Number: IE-ROCHE-497600

PATIENT
  Sex: Male

DRUGS (2)
  1. CHEMOTHERAPY [Concomitant]
  2. AVASTIN [Suspect]
     Indication: COLORECTAL CANCER
     Route: 065
     Dates: start: 20070119

REACTIONS (11)
  - METASTASES TO LIVER [None]
  - ASTHENIA [None]
  - NEUTROPENIA [None]
  - ILL-DEFINED DISORDER [None]
  - LARGE INTESTINE PERFORATION [None]
  - DEATH [None]
  - PERITONITIS [None]
  - PNEUMONIA [None]
  - CONSTIPATION [None]
  - INTESTINAL PERFORATION [None]
  - MYOPATHY [None]
